FAERS Safety Report 20979601 (Version 1)
Quarter: 2022Q2

REPORT INFORMATION
  Report Type: Spontaneous
  Country: US (occurrence: None)
  Receive Date: 20220620
  Receipt Date: 20220620
  Transmission Date: 20220720
  Serious: Yes (Death)
  Sender: FDA-Public Use
  Company Number: US-ROCHE-3119388

PATIENT
  Sex: Male

DRUGS (1)
  1. ESBRIET [Suspect]
     Active Substance: PIRFENIDONE
     Indication: Ill-defined disorder
     Dosage: TAKE 1 TABLET 3 TIMES DAILY FOR 7 DAYS THEN 2 TABLETS BY MOUTH 3 TIMES A DAY FOR 7 DAYS AND THEN TAK
     Route: 048
     Dates: start: 202204

REACTIONS (2)
  - Death [Fatal]
  - Off label use [Unknown]
